FAERS Safety Report 5257094-3 (Version None)
Quarter: 2007Q1

REPORT INFORMATION
  Report Type: 
  Country: None (occurrence: None)
  Receive Date: 20070305
  Receipt Date: 20070305
  Transmission Date: 20070707
  Serious: Yes (Hospitalization)
  Sender: FDA-Public Use
  Company Number: None

PATIENT
  Age: 68 Year
  Sex: Male
  Weight: 78.1548 kg

DRUGS (4)
  1. CETUXIMAB 400MG/M2 D1/250MG/M2 D8 + 15 (BMS) [Suspect]
     Indication: COLON CANCER
     Dosage: 832MG/520MG WEEKLY X 3 IV
     Route: 042
     Dates: start: 20070122
  2. CETUXIMAB 400MG/M2 D1/250MG/M2 D8 + 15 (BMS) [Suspect]
     Indication: COLON CANCER
     Dosage: 832MG/520MG WEEKLY X 3 IV
     Route: 042
     Dates: start: 20070130
  3. CETUXIMAB 400MG/M2 D1/250MG/M2 D8 + 15 (BMS) [Suspect]
     Indication: COLON CANCER
     Dosage: 832MG/520MG WEEKLY X 3 IV
     Route: 042
     Dates: start: 20070206
  4. CAPECITABINE 1000MG/M2 [Suspect]
     Indication: COLON CANCER
     Dosage: 2000MG BID X 14 DAYS PO
     Route: 048
     Dates: start: 20070122, end: 20070204

REACTIONS (6)
  - BLOOD CREATININE INCREASED [None]
  - BLOOD SODIUM DECREASED [None]
  - BLOOD UREA INCREASED [None]
  - CARBON DIOXIDE DECREASED [None]
  - DEHYDRATION [None]
  - PANCREATITIS [None]
